FAERS Safety Report 15549354 (Version 2)
Quarter: 2018Q4

REPORT INFORMATION
  Report Type: Spontaneous
  Country: US (occurrence: US)
  Receive Date: 20181025
  Receipt Date: 20181114
  Transmission Date: 20190205
  Serious: Yes (Other)
  Sender: FDA-Public Use
  Company Number: US-PFIZER INC-2018358313

PATIENT
  Age: 72 Year
  Sex: Female
  Weight: 104 kg

DRUGS (19)
  1. LYRICA [Suspect]
     Active Substance: PREGABALIN
     Indication: SPONDYLOLISTHESIS
     Dosage: 150 MG, 2X/DAY
     Route: 048
     Dates: start: 2016
  2. LYRICA [Suspect]
     Active Substance: PREGABALIN
     Indication: BACK PAIN
  3. SKELAXIN [METAXALONE] [Concomitant]
     Indication: NERVE INJURY
  4. LYRICA [Suspect]
     Active Substance: PREGABALIN
     Indication: PROCEDURAL PAIN
  5. LYRICA [Suspect]
     Active Substance: PREGABALIN
     Indication: MUSCULOSKELETAL PAIN
  6. SKELAXIN [METAXALONE] [Concomitant]
     Indication: SPONDYLOLISTHESIS
     Dosage: 800 MG, 3X/DAY
     Route: 048
     Dates: start: 2016
  7. SKELAXIN [METAXALONE] [Concomitant]
     Indication: INTERVERTEBRAL DISC DISORDER
  8. LYRICA [Suspect]
     Active Substance: PREGABALIN
     Indication: NEURALGIA
  9. LYRICA [Suspect]
     Active Substance: PREGABALIN
     Indication: FIBROMYALGIA
  10. CELEBREX [Concomitant]
     Active Substance: CELECOXIB
     Indication: SPONDYLOLISTHESIS
     Dosage: 200 MG, 2X/DAY
     Route: 048
  11. SKELAXIN [METAXALONE] [Concomitant]
     Indication: NEUROPATHY PERIPHERAL
  12. LYRICA [Suspect]
     Active Substance: PREGABALIN
     Indication: NEUROPATHY PERIPHERAL
     Dosage: 150 MG, 3X/DAY
     Route: 048
  13. CELEBREX [Concomitant]
     Active Substance: CELECOXIB
     Indication: INTERVERTEBRAL DISC DISORDER
  14. CELEBREX [Concomitant]
     Active Substance: CELECOXIB
     Indication: NERVE INJURY
  15. SKELAXIN [METAXALONE] [Concomitant]
     Indication: NEURALGIA
  16. LYRICA [Suspect]
     Active Substance: PREGABALIN
     Indication: INTERVERTEBRAL DISC DISORDER
     Dosage: 150 MG, 3X/DAY
     Route: 048
     Dates: start: 2018, end: 201808
  17. LYRICA [Suspect]
     Active Substance: PREGABALIN
     Indication: NERVE INJURY
  18. CELEBREX [Concomitant]
     Active Substance: CELECOXIB
     Indication: NEUROPATHY PERIPHERAL
  19. CELEBREX [Concomitant]
     Active Substance: CELECOXIB
     Indication: NEURALGIA

REACTIONS (3)
  - Condition aggravated [Unknown]
  - Pain [Unknown]
  - Intentional product misuse [Unknown]

NARRATIVE: CASE EVENT DATE: 201807
